FAERS Safety Report 9773352 (Version 2)
Quarter: 2014Q1

REPORT INFORMATION
  Report Type: Spontaneous
  Country: GB (occurrence: GB)
  Receive Date: 20131219
  Receipt Date: 20140114
  Transmission Date: 20141002
  Serious: Yes (Other)
  Sender: FDA-Public Use
  Company Number: GB-WATSON-2013-23111

PATIENT
  Sex: Female

DRUGS (4)
  1. METHOTREXATE (UNKNOWN) [Suspect]
     Indication: ARTHRALGIA
     Dosage: UNK
     Route: 048
     Dates: start: 200602
  2. METHOTREXATE (UNKNOWN) [Suspect]
     Dosage: 10 MG, UNK
     Route: 048
     Dates: start: 200707
  3. SULFASALAZINE (WATSON LABORATORIES) [Suspect]
     Indication: RHEUMATOID ARTHRITIS
     Dosage: UNK
     Route: 065
     Dates: start: 200612, end: 200707
  4. INFLIXIMAB [Suspect]
     Indication: RHEUMATOID ARTHRITIS
     Dosage: UNK
     Route: 065
     Dates: start: 200704, end: 200708

REACTIONS (3)
  - Convulsion [Unknown]
  - Platelet count decreased [Unknown]
  - Drug ineffective [Unknown]
